FAERS Safety Report 10622622 (Version 1)
Quarter: 2014Q4

REPORT INFORMATION
  Report Type: Spontaneous
  Country: ES (occurrence: ES)
  Receive Date: 20141203
  Receipt Date: 20141203
  Transmission Date: 20150529
  Serious: Yes (Other)
  Sender: FDA-Public Use
  Company Number: ES-ASTRAZENECA-2014SE90189

PATIENT
  Age: 19 Year
  Sex: Female
  Weight: 70 kg

DRUGS (5)
  1. LEVOBUPIVACAINE [Suspect]
     Active Substance: LEVOBUPIVACAINE
     Dosage: ONCE/SINGLE ADMINISTRATION
     Route: 008
  2. LEVOBUPIVACAINE [Suspect]
     Active Substance: LEVOBUPIVACAINE
     Route: 008
  3. LIDOCAINE. [Suspect]
     Active Substance: LIDOCAINE
     Route: 008
  4. FENTANYL. [Suspect]
     Active Substance: FENTANYL
     Route: 008
  5. FENTANYL. [Suspect]
     Active Substance: FENTANYL
     Dosage: 1MCG/M
     Route: 008

REACTIONS (2)
  - Horner^s syndrome [Recovered/Resolved]
  - Drug effect incomplete [Unknown]
